FAERS Safety Report 17241972 (Version 1)
Quarter: 2019Q4

REPORT INFORMATION
  Report Type: Spontaneous
  Country: US (occurrence: US)
  Receive Date: 20191212
  Receipt Date: 20191212
  Transmission Date: 20200122
  Serious: Yes (Hospitalization)
  Sender: FDA-Public Use
  Company Number: None

PATIENT
  Age: 36 Year
  Weight: 81.5 kg

DRUGS (7)
  1. IFOSFAMIDE. [Suspect]
     Active Substance: IFOSFAMIDE
     Dates: end: 20191119
  2. NEULASTA [Suspect]
     Active Substance: PEGFILGRASTIM
     Dates: end: 20191120
  3. TAXOL [Suspect]
     Active Substance: PACLITAXEL
  4. TAXOL [Suspect]
     Active Substance: PACLITAXEL
     Dates: end: 20191115
  5. NEULASTA [Suspect]
     Active Substance: PEGFILGRASTIM
  6. CISPLATIN. [Suspect]
     Active Substance: CISPLATIN
     Dosage: ?          OTHER DOSE:201.2 MG;?
     Dates: end: 20191119
  7. IFOSFAMIDE. [Suspect]
     Active Substance: IFOSFAMIDE

REACTIONS (1)
  - Febrile neutropenia [None]

NARRATIVE: CASE EVENT DATE: 20191125
